FAERS Safety Report 6656299-4 (Version None)
Quarter: 2010Q1

REPORT INFORMATION
  Report Type: 
  Country: None (occurrence: None)
  Receive Date: 20100324
  Receipt Date: 20100316
  Transmission Date: 20100710
  Serious: Yes (Death)
  Sender: FDA-Public Use
  Company Number: B0641236A

PATIENT
  Age: 12 Year

DRUGS (4)
  1. TOPOTECAN HYDROCHLORIDE [Suspect]
     Indication: MEDULLOBLASTOMA
  2. CARBOPLATIN (FORMULATION UNKNOWN) (GENERIC) (CARBOPLATIN) [Suspect]
     Indication: MEDULLOBLASTOMA
  3. THIOTEPA [Suspect]
     Indication: MEDULLOBLASTOMA
  4. GRANULOCYTE COL.STIM.FACT [Concomitant]

REACTIONS (4)
  - DRUG TOXICITY [None]
  - HYPOTENSION [None]
  - MULTI-ORGAN FAILURE [None]
  - PYREXIA [None]
